FAERS Safety Report 6102923-4 (Version None)
Quarter: 2009Q1

REPORT INFORMATION
  Report Type: 
  Country: None (occurrence: None)
  Receive Date: 20090303
  Receipt Date: 20090303
  Transmission Date: 20090719
  Serious: Yes (Disabling)
  Sender: FDA-Public Use
  Company Number: None

PATIENT
  Age: 56 Year
  Sex: Female
  Weight: 68.0396 kg

DRUGS (2)
  1. SEROQUEL [Suspect]
     Indication: MAJOR DEPRESSION
     Dosage: TOTAL BETWEEN TABS 1400MG DAILY PO 1400MG FROM 2 WKS IN SUSP TIL TITRATED DOWN JAN'09
     Route: 048
     Dates: start: 20071212, end: 20080901
  2. SEROQUEL [Suspect]

REACTIONS (25)
  - ABNORMAL DREAMS [None]
  - ANGER [None]
  - ANXIETY [None]
  - CONDITION AGGRAVATED [None]
  - CRYSTAL URINE PRESENT [None]
  - DEFORMITY [None]
  - DIABETES MELLITUS [None]
  - FALL [None]
  - FEAR [None]
  - HYPERLIPIDAEMIA [None]
  - HYPERTENSION [None]
  - IMPAIRED HEALING [None]
  - INSOMNIA [None]
  - LIVER DISORDER [None]
  - MENTAL STATUS CHANGES [None]
  - OBESITY [None]
  - PHOTOPHOBIA [None]
  - POLYURIA [None]
  - THINKING ABNORMAL [None]
  - THIRST [None]
  - ULNA FRACTURE [None]
  - VISION BLURRED [None]
  - VISUAL IMPAIRMENT [None]
  - WAIST CIRCUMFERENCE INCREASED [None]
  - WEIGHT INCREASED [None]
